FAERS Safety Report 6885387-2 (Version None)
Quarter: 2010Q3

REPORT INFORMATION
  Report Type: 
  Country: None (occurrence: None)
  Receive Date: 20100729
  Receipt Date: 20080715
  Transmission Date: 20110219
  Serious: No
  Sender: FDA-Public Use
  Company Number: US-PFIZER INC-2008053345

PATIENT
  Sex: Female
  Weight: 68.2 kg

DRUGS (5)
  1. CELEBREX [Suspect]
     Indication: OSTEOARTHRITIS
     Route: 048
     Dates: start: 20080624
  2. CELEBREX [Suspect]
     Indication: SPINAL COLUMN STENOSIS
  3. CELEBREX [Suspect]
     Indication: PAIN
  4. DIOVANE [Concomitant]
     Indication: HYPERTENSION
  5. VITAMINS WITH MINERALS [Concomitant]

REACTIONS (1)
  - HEADACHE [None]
